FAERS Safety Report 8322069 (Version 2)
Quarter: 2013Q4

REPORT INFORMATION
  Report Type: Report from Study
  Country: DE (occurrence: DE)
  Receive Date: 20120105
  Receipt Date: 20131029
  Transmission Date: 20140711
  Serious: Yes (Life-Threatening, Hospitalization)
  Sender: FDA-Public Use
  Company Number: DE-BRISTOL-MYERS SQUIBB COMPANY-16326555

PATIENT
  Age: 48 Year
  Sex: Male
  Weight: 81 kg

DRUGS (4)
  1. CETUXIMAB [Suspect]
     Indication: HEAD AND NECK CANCER
     Dosage: LAST DRUG ADMIN: 1 HR
     Dates: start: 20111222
  2. CISPLATIN [Suspect]
     Indication: HEAD AND NECK CANCER
     Dosage: LAST DRUG ADMIN: 1 HR
     Dates: start: 20111222
  3. DOCETAXEL [Suspect]
     Indication: HEAD AND NECK CANCER
     Dosage: LAST DRUG ADMIN: 1 HR
     Dates: start: 20111222
  4. 5-FLUOROURACIL [Suspect]
     Indication: HEAD AND NECK CANCER
     Dosage: LAST DRUG ADMIN: 24 HRS
     Dates: start: 20111222

REACTIONS (2)
  - Neutropenia [Recovered/Resolved]
  - Leukopenia [Recovered/Resolved]
